FAERS Safety Report 9105883 (Version 1)
Quarter: 2013Q1

REPORT INFORMATION
  Report Type: Spontaneous
  Country: US (occurrence: US)
  Receive Date: 20130220
  Receipt Date: 20130220
  Transmission Date: 20140127
  Serious: Yes (Other)
  Sender: FDA-Public Use
  Company Number: US-BAYER-2013-021677

PATIENT
  Age: 66 Year
  Sex: Male

DRUGS (2)
  1. ALEVE GELCAP [Suspect]
     Dosage: 2 DF
     Route: 048
  2. ALKA-SELTZER PLUS COLD SPARKLING ORIGINAL [Interacting]

REACTIONS (2)
  - Haematochezia [Recovered/Resolved]
  - Labelled drug-drug interaction medication error [None]
